FAERS Safety Report 8347902-1 (Version None)
Quarter: 2012Q2

REPORT INFORMATION
  Report Type: 
  Country: None (occurrence: None)
  Receive Date: 20120509
  Receipt Date: 20100624
  Transmission Date: 20120825
  Serious: No
  Sender: FDA-Public Use
  Company Number: US-TEVA-2010003412

PATIENT
  Sex: Female
  Weight: 92.162 kg

DRUGS (6)
  1. MULTI-VITAMIN [Concomitant]
  2. VICODIN [Concomitant]
     Indication: PAIN
     Dosage: 30 MILLIGRAM;
     Dates: start: 20070101
  3. NUVIGIL [Suspect]
     Indication: SLEEP APNOEA SYNDROME
     Dosage: 250 MILLIGRAM;
     Route: 048
     Dates: start: 20100602
  4. LORATADINE [Concomitant]
     Indication: SEASONAL ALLERGY
     Dosage: 10 MILLIGRAM;
     Dates: start: 19900101
  5. CYMBALTA [Concomitant]
     Indication: DEPRESSION
     Dosage: 120 MILLIGRAM;
     Dates: start: 20060101
  6. GEODON [Suspect]
     Indication: SCHIZOPHRENIA
     Dosage: 80 MILLIGRAM;
     Dates: start: 20100501, end: 20100605

REACTIONS (3)
  - DYSTONIA [None]
  - COUGH [None]
  - DRUG INTERACTION [None]
